FAERS Safety Report 4524535-6 (Version None)
Quarter: 2005Q1

REPORT INFORMATION
  Report Type: 
  Country: None (occurrence: None)
  Receive Date: 20041117
  Receipt Date: 20040121
  Transmission Date: 20050727
  Serious: Yes (Other)
  Sender: FDA-Public Use
  Company Number: US-JNJFOC-20040104441

PATIENT
  Sex: 0

DRUGS (1)
  1. LEVAQUIN [Suspect]

REACTIONS (3)
  - FULL BLOOD COUNT ABNORMAL [None]
  - LIVER DISORDER [None]
  - PYREXIA [None]
